FAERS Safety Report 4589616-X (Version None)
Quarter: 2005Q1

REPORT INFORMATION
  Report Type: 
  Country: None (occurrence: None)
  Receive Date: 20050217
  Receipt Date: 20050207
  Transmission Date: 20050727
  Serious: Yes (Other)
  Sender: FDA-Public Use
  Company Number: 2004-11-0626

PATIENT
  Age: 57 Year
  Sex: Female
  Weight: 57 kg

DRUGS (14)
  1. INTRON A [Suspect]
     Indication: HEPATITIS C
     Dosage: 3 MU QD-BIW INTRAMUSCULAR
     Route: 030
     Dates: start: 20040615, end: 20040627
  2. INTRON A [Suspect]
     Indication: HEPATITIS C
     Dosage: 3 MU QD-BIW INTRAMUSCULAR
     Route: 030
     Dates: start: 20040615
  3. INTRON A [Suspect]
     Indication: HEPATITIS C
     Dosage: 3 MU QD-BIW INTRAMUSCULAR
     Route: 030
     Dates: start: 20040628
  4. INTRON A [Suspect]
     Indication: HEPATITIS C
     Dosage: 3 MU QD-BIW INTRAMUSCULAR
     Route: 030
     Dates: start: 20041102
  5. REBETOL [Suspect]
     Indication: HEPATITIS C
     Dosage: SEE IMAGE   ORAL
     Route: 048
     Dates: start: 20040612, end: 20040617
  6. REBETOL [Suspect]
     Indication: HEPATITIS C
     Dosage: SEE IMAGE   ORAL
     Route: 048
     Dates: start: 20040612
  7. REBETOL [Suspect]
     Indication: HEPATITIS C
     Dosage: SEE IMAGE   ORAL
     Route: 048
     Dates: start: 20040618
  8. REBETOL [Suspect]
     Indication: HEPATITIS C
     Dosage: SEE IMAGE   ORAL
     Route: 048
     Dates: start: 20041102
  9. PROGRAF [Concomitant]
  10. PREDNISOLONE [Concomitant]
  11. REBAMIPIDE [Concomitant]
  12. OMEPRAZOLE [Concomitant]
  13. FRANDOL TRANSDERMAL [Concomitant]
  14. INSULIN HUMAN INJECTABLE [Concomitant]

REACTIONS (4)
  - HYPERTENSION [None]
  - HYPOAESTHESIA [None]
  - OSTEOPOROSIS [None]
  - PUTAMEN HAEMORRHAGE [None]
